FAERS Safety Report 11195257 (Version 1)
Quarter: 2015Q2

REPORT INFORMATION
  Report Type: Spontaneous
  Country: US (occurrence: None)
  Receive Date: 20150615
  Receipt Date: 20150615
  Transmission Date: 20150821
  Serious: Yes (Other)
  Sender: FDA-Public Use
  Company Number: NSR_02134_2015

PATIENT
  Age: 33 Year
  Sex: Female

DRUGS (6)
  1. OXCARBAZEPINE. [Suspect]
     Active Substance: OXCARBAZEPINE
     Indication: SEIZURE
     Dosage: DF
  2. PHENYTOIN. [Suspect]
     Active Substance: PHENYTOIN
     Indication: SEIZURE
  3. LAMOTRIGINE. [Suspect]
     Active Substance: LAMOTRIGINE
     Indication: EPILEPSY
  4. VENLAFAXINE [Suspect]
     Active Substance: VENLAFAXINE HYDROCHLORIDE
     Indication: DEPRESSION
     Dosage: TITRATED
  5. TRAMADOL [Suspect]
     Active Substance: TRAMADOL
     Indication: NEURALGIA
  6. SERTRALINE [Suspect]
     Active Substance: SERTRALINE HYDROCHLORIDE
     Indication: DEPRESSION

REACTIONS (10)
  - Depression [None]
  - Drug interaction [None]
  - Anhedonia [None]
  - Drug ineffective [None]
  - Restlessness [None]
  - Overdose [None]
  - Insomnia [None]
  - Epilepsy [None]
  - Drug dependence [None]
  - Feeling of despair [None]
